FAERS Safety Report 5910400-6 (Version None)
Quarter: 2008Q4

REPORT INFORMATION
  Report Type: 
  Country: None (occurrence: None)
  Receive Date: 20081007
  Receipt Date: 20080122
  Transmission Date: 20090506
  Serious: No
  Sender: FDA-Public Use
  Company Number: US-ASTRAZENECA-2008UW01622

PATIENT
  Sex: Female

DRUGS (2)
  1. ARIMIDEX [Suspect]
     Indication: BREAST CANCER
     Dates: start: 20060301
  2. REMICADE [Concomitant]

REACTIONS (3)
  - BURNING SENSATION [None]
  - RHEUMATOID ARTHRITIS [None]
  - WEIGHT DECREASED [None]
